FAERS Safety Report 8603620-3 (Version None)
Quarter: 2012Q3

REPORT INFORMATION
  Report Type: 
  Country: None (occurrence: None)
  Receive Date: 20120817
  Receipt Date: 20120803
  Transmission Date: 20120928
  Serious: No
  Sender: FDA-Public Use
  Company Number: US-ASTRAZENECA-2012SE27358

PATIENT
  Age: 44 Year
  Sex: Female

DRUGS (6)
  1. SEROQUEL XR [Suspect]
     Route: 048
  2. SYNTHROID [Concomitant]
  3. ARICEPT [Concomitant]
  4. LEVOTHYROXINE SODIUM [Concomitant]
  5. DEPAKOTE [Concomitant]
  6. NEXIUM [Suspect]
     Route: 048

REACTIONS (3)
  - CRYING [None]
  - CONVERSION DISORDER [None]
  - DEMENTIA [None]
